FAERS Safety Report 9911644 (Version 2)
Quarter: 2014Q1

REPORT INFORMATION
  Report Type: Report from Study
  Country: AU (occurrence: AU)
  Receive Date: 20140219
  Receipt Date: 20140317
  Transmission Date: 20141002
  Serious: Yes (Hospitalization)
  Sender: FDA-Public Use
  Company Number: PHHY2014AU019444

PATIENT
  Age: 60 Year
  Sex: Male

DRUGS (1)
  1. SANDOSTATIN LAR [Suspect]
     Indication: CARCINOID SYNDROME
     Dosage: 20 MG
     Route: 030
     Dates: start: 201112

REACTIONS (2)
  - Cholecystitis infective [Recovered/Resolved with Sequelae]
  - Pyrexia [Recovered/Resolved with Sequelae]
